FAERS Safety Report 11906278 (Version 6)
Quarter: 2016Q2

REPORT INFORMATION
  Report Type: Spontaneous
  Country: US (occurrence: US)
  Receive Date: 20160111
  Receipt Date: 20160404
  Transmission Date: 20160815
  Serious: Yes (Hospitalization)
  Sender: FDA-Public Use
  Company Number: US-XENOPORT, INC.-2016US000057

PATIENT
  Sex: Female
  Weight: 70.75 kg

DRUGS (16)
  1. HORIZANT [Suspect]
     Active Substance: GABAPENTIN ENACARBIL
     Indication: MYALGIA
  2. HORIZANT [Suspect]
     Active Substance: GABAPENTIN ENACARBIL
     Indication: PAIN IN EXTREMITY
  3. DIGOXIN. [Concomitant]
     Active Substance: DIGOXIN
     Indication: ARRHYTHMIA
     Dosage: 1 TABLET, ONCE A DAY
     Route: 048
     Dates: start: 201408, end: 201511
  4. ZOFRAN [Concomitant]
     Active Substance: ONDANSETRON HYDROCHLORIDE
     Indication: NAUSEA
     Dosage: 4 MG, EVERY 8 HOURS AS NEEDED
     Route: 048
  5. HORIZANT [Suspect]
     Active Substance: GABAPENTIN ENACARBIL
     Indication: COMPLEX REGIONAL PAIN SYNDROME
  6. HORIZANT [Suspect]
     Active Substance: GABAPENTIN ENACARBIL
     Indication: PAIN IN EXTREMITY
  7. CLONAZEPAM. [Concomitant]
     Active Substance: CLONAZEPAM
     Dosage: 1 TAB, THREE TIMES A DAY, TRIES TO TAKE ONLY ONE
  8. ATENOLOL. [Concomitant]
     Active Substance: ATENOLOL
     Dosage: 1 DF, TWICE A DAY
     Route: 048
  9. SPIRONOLACTONE. [Concomitant]
     Active Substance: SPIRONOLACTONE
     Dosage: 1 DF, ONCE A DAY
     Route: 048
  10. LASIX [Concomitant]
     Active Substance: FUROSEMIDE
     Dosage: 1 DF, ONCE A DAY AS NEEDED
     Route: 048
  11. HORIZANT [Suspect]
     Active Substance: GABAPENTIN ENACARBIL
     Indication: TRIGEMINAL NEURALGIA
     Dosage: 600MG DAILY 20 MINUTES BEFORE DINNER
     Route: 048
     Dates: start: 2015
  12. NEXIUM [Concomitant]
     Active Substance: ESOMEPRAZOLE MAGNESIUM
     Dosage: 1 CAPSULE, TWICE A DAY
     Route: 048
  13. HORIZANT [Suspect]
     Active Substance: GABAPENTIN ENACARBIL
     Indication: CONNECTIVE TISSUE DISORDER
  14. LIBRAX [Concomitant]
     Active Substance: CHLORDIAZEPOXIDE HYDROCHLORIDE\CLIDINIUM BROMIDE
     Dosage: TAKES EVERY 6 HOURS, UNSURE OF THE DOSE
  15. ZOFRAN [Concomitant]
     Active Substance: ONDANSETRON HYDROCHLORIDE
     Indication: VOMITING
  16. LACTOBACILLUS BIFIDUS [Concomitant]
     Dosage: 1 DF, ONCE A DAY
     Route: 048

REACTIONS (3)
  - Ileus [Not Recovered/Not Resolved]
  - Supraventricular tachycardia [Unknown]
  - Off label use [Unknown]
